FAERS Safety Report 6580380-1 (Version None)
Quarter: 2010Q1

REPORT INFORMATION
  Report Type: 
  Country: None (occurrence: None)
  Receive Date: 20100212
  Receipt Date: 20100201
  Transmission Date: 20100710
  Serious: Yes (Hospitalization, Other)
  Sender: FDA-Public Use
  Company Number: PHEH2008US02665

PATIENT
  Sex: Female
  Weight: 39.365 kg

DRUGS (34)
  1. AREDIA [Suspect]
     Indication: BONE PAIN
  2. ZOMETA [Suspect]
  3. COUMADIN [Concomitant]
  4. DECADRON                                /CAN/ [Concomitant]
  5. CELEXA [Concomitant]
  6. DETROL [Concomitant]
  7. GLYCOPYRROLATE [Concomitant]
     Dosage: 1MG QD
     Route: 048
     Dates: start: 20080804
  8. EVISTA [Concomitant]
     Dosage: 60MG QD
     Route: 048
  9. REMERON [Concomitant]
     Dosage: 30MG PO QD
     Route: 048
  10. ASPIRIN [Concomitant]
     Dosage: 81MG QD
     Route: 048
  11. CALCIUM [Concomitant]
     Dosage: 500MG QD
     Route: 048
  12. VICODIN [Concomitant]
     Dosage: 10-325MG
     Route: 048
  13. CLONAZEPAM [Concomitant]
     Dosage: 0.5MG PO TID PRN
     Route: 048
  14. OXYCODONE HCL [Concomitant]
     Dosage: 5MG PO QID PRN
     Route: 048
  15. FENTANYL-100 [Concomitant]
     Dosage: 100MCG
     Route: 062
  16. ROZEREM [Concomitant]
     Dosage: 8MG PO QHS PRN
     Route: 048
  17. LEXAPRO [Concomitant]
     Dosage: 20MG QD
     Route: 048
  18. NEXIUM [Concomitant]
     Dosage: 40MG QD
     Route: 048
  19. MEROPENEM [Concomitant]
     Dosage: 1G Q12HRS IV
     Dates: start: 20071223
  20. VANCOMYCIN [Concomitant]
     Dosage: 750MG IVQ24HRS
     Dates: start: 20071223
  21. PREDNISONE [Concomitant]
     Dosage: UNK
     Route: 048
     Dates: start: 20010409
  22. PAMIDRONATE DISODIUM [Concomitant]
     Dosage: UNK
     Route: 048
     Dates: start: 20010409
  23. NORCO [Concomitant]
     Dosage: UNK
     Route: 048
     Dates: start: 20010409
  24. AMBIEN [Concomitant]
     Dosage: 5MG PO QHS PRN
     Route: 048
  25. OXYCONTIN [Concomitant]
     Dosage: UNK
     Route: 048
     Dates: start: 20010409
  26. Z-PAK [Concomitant]
     Dosage: UNK
     Route: 048
     Dates: start: 20060123
  27. DITROPAN [Concomitant]
     Dosage: 10MG
     Route: 048
     Dates: start: 20060123
  28. ADRIAMYCIN PFS [Concomitant]
     Dosage: UNK
     Dates: start: 20060220
  29. CIPRO [Concomitant]
     Dosage: QD
     Route: 048
  30. PROTONIX [Concomitant]
     Dosage: 40MG QD
     Route: 048
  31. AVINZA [Concomitant]
     Dosage: 30
     Route: 048
  32. THALIDOMIDE [Concomitant]
     Dosage: 10MG
     Route: 048
  33. DECADRON #1 [Concomitant]
     Dosage: UNK
     Route: 048
  34. CHLORAMBUCIL [Concomitant]
     Dosage: UNK

REACTIONS (44)
  - ACUTE RESPIRATORY FAILURE [None]
  - ALVEOLOPLASTY [None]
  - ANXIETY [None]
  - ASTHENIA [None]
  - BACK PAIN [None]
  - BACTERIAL DISEASE CARRIER [None]
  - BONE DISORDER [None]
  - BONE LESION [None]
  - BONE SWELLING [None]
  - CELLULITIS [None]
  - DEEP VEIN THROMBOSIS [None]
  - DENTAL CARIES [None]
  - DENTAL FISTULA [None]
  - DENTURE WEARER [None]
  - DEPRESSION [None]
  - DIARRHOEA [None]
  - DISABILITY [None]
  - DYSPNOEA [None]
  - EXTRAVASATION [None]
  - FISTULA DISCHARGE [None]
  - GASTROINTESTINAL HAEMORRHAGE [None]
  - HYPOVOLAEMIC SHOCK [None]
  - HYPOXIA [None]
  - INJURY [None]
  - JAW OPERATION [None]
  - MASTICATION DISORDER [None]
  - MENTAL STATUS CHANGES [None]
  - NAUSEA [None]
  - NIGHT SWEATS [None]
  - ORAL CANDIDIASIS [None]
  - OSTEONECROSIS [None]
  - PAIN [None]
  - PAIN IN JAW [None]
  - PNEUMONIA ASPIRATION [None]
  - PNEUMONIA STREPTOCOCCAL [None]
  - PURULENT DISCHARGE [None]
  - SPINAL COMPRESSION FRACTURE [None]
  - STAPHYLOCOCCAL BACTERAEMIA [None]
  - TOOTH EXTRACTION [None]
  - URINARY INCONTINENCE [None]
  - URINARY TRACT INFECTION [None]
  - VOMITING [None]
  - WEIGHT DECREASED [None]
  - WOUND DRAINAGE [None]
